FAERS Safety Report 5722128-6 (Version None)
Quarter: 2008Q2

REPORT INFORMATION
  Report Type: 
  Country: None (occurrence: None)
  Receive Date: 20080429
  Receipt Date: 20070522
  Transmission Date: 20081010
  Serious: No
  Sender: FDA-Public Use
  Company Number: US-ASTRAZENECA-2007UW12692

PATIENT
  Age: 69 Year
  Sex: Female
  Weight: 59 kg

DRUGS (8)
  1. NEXIUM [Suspect]
     Indication: GASTROOESOPHAGEAL REFLUX DISEASE
     Route: 048
  2. ZESTRIL [Concomitant]
  3. SYNTHROID [Concomitant]
  4. ASPIRIN [Concomitant]
  5. FISH OIL [Concomitant]
  6. FLAXSEED OIL [Concomitant]
  7. PREMARIN [Concomitant]
  8. PROMETRIUM [Concomitant]

REACTIONS (3)
  - DYSPHONIA [None]
  - ORAL DISCOMFORT [None]
  - THROAT IRRITATION [None]
